FAERS Safety Report 5970924-2 (Version None)
Quarter: 2008Q4

REPORT INFORMATION
  Report Type: 
  Country: None (occurrence: None)
  Receive Date: 20081128
  Receipt Date: 20081118
  Transmission Date: 20090506
  Serious: Yes (Other)
  Sender: FDA-Public Use
  Company Number: PHEH2008US10363

PATIENT
  Sex: Female
  Weight: 47.166 kg

DRUGS (1)
  1. RECLAST [Suspect]
     Dosage: UNK
     Dates: start: 20080501

REACTIONS (3)
  - DYSPNOEA [None]
  - FALL [None]
  - RIB FRACTURE [None]
